FAERS Safety Report 19809720 (Version 1)
Quarter: 2021Q3

REPORT INFORMATION
  Report Type: Spontaneous
  Country: US (occurrence: US)
  Receive Date: 20210909
  Receipt Date: 20210909
  Transmission Date: 20211014
  Serious: No
  Sender: FDA-Public Use
  Company Number: US-009507513-2108USA005134

PATIENT
  Sex: Female

DRUGS (3)
  1. STROMECTOL [Suspect]
     Active Substance: IVERMECTIN
     Indication: ACARODERMATITIS
     Dosage: 200 MICROGRAM PER KILOGRAM ON DAYS 1,2,8,9, AND 15
     Route: 048
  2. PERMETHRIN. [Concomitant]
     Active Substance: PERMETHRIN
     Indication: ACARODERMATITIS
     Dosage: APPLIED TO THE ENTIRE BODY, QD, FOR 7 DAYS
  3. PERMETHRIN. [Concomitant]
     Active Substance: PERMETHRIN
     Dosage: APPLIED TO THE ENTIRE BODY, BIW

REACTIONS (1)
  - Product use in unapproved indication [Unknown]
